FAERS Safety Report 9204089 (Version 2)
Quarter: 2013Q2

REPORT INFORMATION
  Report Type: Spontaneous
  Country: US (occurrence: US)
  Receive Date: 20130402
  Receipt Date: 20130516
  Transmission Date: 20140414
  Serious: Yes (Other)
  Sender: FDA-Public Use
  Company Number: US-PFIZER INC-2013100864

PATIENT
  Age: 67 Year
  Sex: Female
  Weight: 85.26 kg

DRUGS (11)
  1. GEODON [Suspect]
     Indication: SCHIZOPHRENIA
     Dosage: 40 MG, 4X/DAY
     Route: 048
     Dates: start: 20020809
  2. DIGOXIN [Concomitant]
     Indication: CARDIAC DISORDER
     Dosage: 0.25 MG, DAILY
  3. PERCOCET [Concomitant]
     Indication: PAIN
     Dosage: UNK, AS NEEDED
  4. JANUVIA [Concomitant]
     Indication: DIABETES MELLITUS
     Dosage: 25 MG, DAILY
  5. METFORMIN [Concomitant]
     Indication: DIABETES MELLITUS
     Dosage: 500 MG, 4X/DAY
  6. LISINOPRIL [Concomitant]
     Indication: HYPERTENSION
     Dosage: 20 MG, 2X/DAY
  7. METOPROLOL [Concomitant]
     Indication: HYPERTENSION
     Dosage: UNK, 2X/DAY
  8. NEXIUM [Concomitant]
     Dosage: 40 MG, DAILY
  9. KLONOPIN [Concomitant]
     Dosage: UNK
  10. GLIMEPIRIDE [Concomitant]
     Dosage: UNK, AS NEEDED
  11. IRON [Concomitant]
     Indication: MINERAL SUPPLEMENTATION
     Dosage: UNK

REACTIONS (1)
  - Breast cancer recurrent [Not Recovered/Not Resolved]
